FAERS Safety Report 6083771-0 (Version None)
Quarter: 2009Q1

REPORT INFORMATION
  Report Type: 
  Country: None (occurrence: None)
  Receive Date: 20090219
  Receipt Date: 20090210
  Transmission Date: 20090719
  Serious: Yes (Other)
  Sender: FDA-Public Use
  Company Number: BR-PFIZER INC-2009166834

PATIENT

DRUGS (4)
  1. DEPO-PROVERA [Suspect]
     Indication: METRORRHAGIA
     Dosage: 150 MG, SINGLE, TRIMESTRALY
  2. DEPO-PROVERA [Suspect]
     Indication: UTERINE LEIOMYOMA
  3. LOSARTAN [Concomitant]
     Dosage: 50 MG, UNK
  4. CARVEDILOL [Concomitant]
     Dosage: UNK

REACTIONS (9)
  - BLINDNESS [None]
  - BLOOD TRIGLYCERIDES ABNORMAL [None]
  - BREAST MASS [None]
  - HIRSUTISM [None]
  - MENORRHAGIA [None]
  - METRORRHAGIA [None]
  - OSTEOARTHRITIS [None]
  - URINARY TRACT INFECTION [None]
  - WEIGHT INCREASED [None]
